FAERS Safety Report 17841649 (Version 2)
Quarter: 2020Q2

REPORT INFORMATION
  Report Type: Report from Study
  Country: US (occurrence: US)
  Receive Date: 20200529
  Receipt Date: 20200624
  Transmission Date: 20200714
  Serious: Yes (Death, Life-Threatening)
  Sender: FDA-Public Use
  Company Number: US-AMGEN-USACT2020086124

PATIENT
  Age: 75 Year
  Sex: Male
  Weight: 110.64 kg

DRUGS (23)
  1. AMBIEN [Concomitant]
     Active Substance: ZOLPIDEM TARTRATE
     Dosage: 10 MILLIGRAM
     Dates: start: 20140508
  2. MVI [VITAMINS NOS] [Concomitant]
     Dosage: 1 UNK
     Dates: start: 20140508
  3. AMMONIUM LACTATE. [Concomitant]
     Active Substance: AMMONIUM LACTATE
     Dosage: 12 UNK
     Dates: start: 20160411
  4. BENADRYL [Concomitant]
     Active Substance: DIPHENHYDRAMINE HYDROCHLORIDE
     Dosage: 25 MILLIGRAM
     Dates: start: 20140508
  5. BETAMETHASONE VALERATE. [Concomitant]
     Active Substance: BETAMETHASONE VALERATE
     Dosage: 0.1 UNK
     Dates: start: 20140508
  6. DEPAKOTE [Concomitant]
     Active Substance: DIVALPROEX SODIUM
     Dosage: 500 MILLIGRAM
     Dates: start: 20140508
  7. IBU [Concomitant]
     Active Substance: IBUPROFEN
     Dosage: 400 MILLIGRAM
     Dates: start: 20140508
  8. LISINOPRIL. [Concomitant]
     Active Substance: LISINOPRIL
     Dosage: 5 MILLIGRAM
     Dates: start: 20140508
  9. TRAZODONE [Concomitant]
     Active Substance: TRAZODONE HYDROCHLORIDE
     Dosage: 100 MILLIGRAM
     Dates: start: 20140508
  10. MARCAINE [Concomitant]
     Active Substance: BUPIVACAINE HYDROCHLORIDE
     Dosage: 0.5 UNK
     Dates: start: 20161111
  11. FUROSEMIDE. [Concomitant]
     Active Substance: FUROSEMIDE
     Dosage: 40 MILLIGRAM
     Dates: start: 20140508
  12. ASPIRIN [ACETYLSALICYLIC ACID] [Concomitant]
     Active Substance: ASPIRIN
     Dosage: 325 MILLIGRAM
     Dates: start: 20140508
  13. KENALOG [Concomitant]
     Active Substance: TRIAMCINOLONE ACETONIDE
     Dosage: 40 MILLIGRAM
     Dates: start: 20161111
  14. HUMALOG MIX [Concomitant]
     Active Substance: INSULIN LISPRO
     Dosage: 25-75 UNK
     Dates: start: 20140508
  15. POTASSIUM [Concomitant]
     Active Substance: POTASSIUM
     Dosage: 20 MILLIEQUIVALENT
     Dates: start: 20180424
  16. EVOLOCUMAB [Suspect]
     Active Substance: EVOLOCUMAB
     Indication: DYSLIPIDAEMIA
     Dosage: UNK MILLILITER
     Route: 058
     Dates: start: 20160927
  17. MS CONTIN [Concomitant]
     Active Substance: MORPHINE SULFATE
     Dosage: 15 MILLIGRAM
     Dates: start: 20140508
  18. ALPRAZOLAM. [Concomitant]
     Active Substance: ALPRAZOLAM
     Dosage: 1 MILLIGRAM
     Dates: start: 20170120
  19. ATORVASTATIN [Concomitant]
     Active Substance: ATORVASTATIN
     Indication: DYSLIPIDAEMIA
     Dosage: 80 MILLIGRAM
     Dates: start: 20140512
  20. INSULIN [Concomitant]
     Active Substance: INSULIN NOS
     Dosage: UNK
  21. TAMSULOSIN [Concomitant]
     Active Substance: TAMSULOSIN
     Dosage: 0.4 MILLIGRAM
     Dates: start: 20150216
  22. LIDOCAINE. [Concomitant]
     Active Substance: LIDOCAINE
     Dosage: 1 UNK
     Dates: start: 20161111
  23. EFFEXOR [Concomitant]
     Active Substance: VENLAFAXINE HYDROCHLORIDE
     Dosage: 150 MILLIGRAM
     Dates: start: 20140508

REACTIONS (1)
  - Chronic obstructive pulmonary disease [Fatal]

NARRATIVE: CASE EVENT DATE: 20200303
